FAERS Safety Report 6557233-8 (Version None)
Quarter: 2010Q1

REPORT INFORMATION
  Report Type: 
  Country: None (occurrence: None)
  Receive Date: 20100129
  Receipt Date: 20100119
  Transmission Date: 20100710
  Serious: Yes (Other)
  Sender: FDA-Public Use
  Company Number: US-RB-001580-10

PATIENT
  Age: 7 Year
  Sex: Female

DRUGS (1)
  1. DELSYM CHILDREN'S COUGH SYRUP [Suspect]
     Dosage: TOOK 1 TEASPOON
     Route: 048
     Dates: start: 20100113

REACTIONS (1)
  - CONVULSION [None]
